FAERS Safety Report 9995785 (Version 1)
Quarter: 2014Q1

REPORT INFORMATION
  Report Type: Spontaneous
  Country: US (occurrence: US)
  Receive Date: 20140311
  Receipt Date: 20140311
  Transmission Date: 20141002
  Serious: Yes (Hospitalization)
  Sender: FDA-Public Use
  Company Number: US-ASTRAZENECA-2014SE15159

PATIENT
  Age: 55 Year
  Sex: Male

DRUGS (1)
  1. BRILINTA [Suspect]
     Indication: STENT PLACEMENT
     Route: 048
     Dates: start: 201403

REACTIONS (2)
  - Condition aggravated [Unknown]
  - Inappropriate schedule of drug administration [Unknown]
